FAERS Safety Report 15791358 (Version 1)
Quarter: 2019Q1

REPORT INFORMATION
  Report Type: Report from Study
  Country: US (occurrence: US)
  Receive Date: 20190104
  Receipt Date: 20190104
  Transmission Date: 20190417
  Serious: Yes (Hospitalization, Disabling, Other)
  Sender: FDA-Public Use
  Company Number: US-GILEAD-2018-0378997

PATIENT
  Age: 68 Year
  Sex: Male

DRUGS (22)
  1. AZITHROMYCIN ANHYDROUS. [Concomitant]
     Active Substance: AZITHROMYCIN ANHYDROUS
  2. INVOKANA [Concomitant]
     Active Substance: CANAGLIFLOZIN
  3. ONDANSETRON [Concomitant]
     Active Substance: ONDANSETRON
  4. COMPAZINE [Concomitant]
     Active Substance: PROCHLORPERAZINE MALEATE
  5. IDELALISIB [Suspect]
     Active Substance: IDELALISIB
     Indication: CHRONIC LYMPHOCYTIC LEUKAEMIA
     Dosage: 100 MG, BID
     Route: 048
     Dates: start: 20181203
  6. BENZONATATE. [Concomitant]
     Active Substance: BENZONATATE
  7. MAXIDONE [Concomitant]
     Active Substance: ACETAMINOPHEN\HYDROCODONE BITARTRATE
  8. METFORMIN [Concomitant]
     Active Substance: METFORMIN HYDROCHLORIDE
  9. PROBIOTICS NOS [Concomitant]
     Active Substance: PROBIOTICS NOS
  10. TYLENOL [Concomitant]
     Active Substance: ACETAMINOPHEN
  11. SYMBICORT [Concomitant]
     Active Substance: BUDESONIDE\FORMOTEROL FUMARATE DIHYDRATE
  12. MUCINEX [Concomitant]
     Active Substance: GUAIFENESIN
  13. GUAIFENESIN. [Concomitant]
     Active Substance: GUAIFENESIN
  14. ACETAMINOPHEN. [Concomitant]
     Active Substance: ACETAMINOPHEN
  15. PROMETHAZINE [Concomitant]
     Active Substance: PROMETHAZINE\PROMETHAZINE HYDROCHLORIDE
  16. ALLOPURINOL. [Concomitant]
     Active Substance: ALLOPURINOL
  17. PREVALITE [Concomitant]
     Active Substance: CHOLESTYRAMINE
  18. IDELALISIB [Suspect]
     Active Substance: IDELALISIB
     Indication: LYMPHOCYTIC LEUKAEMIA
  19. ATENOLOL. [Concomitant]
     Active Substance: ATENOLOL
  20. VENTOLIN [Concomitant]
     Active Substance: ALBUTEROL SULFATE
  21. CENTRUM A TO ZINC [Concomitant]
  22. OMEPRAZOLE. [Concomitant]
     Active Substance: OMEPRAZOLE

REACTIONS (3)
  - Night sweats [Unknown]
  - Asthenia [Not Recovered/Not Resolved]
  - Transfusion [Unknown]
